FAERS Safety Report 8565089-7 (Version None)
Quarter: 2012Q3

REPORT INFORMATION
  Report Type: 
  Country: None (occurrence: None)
  Receive Date: 20120803
  Receipt Date: 20120726
  Transmission Date: 20120928
  Serious: Yes (Hospitalization)
  Sender: FDA-Public Use
  Company Number: FR-VERTEX PHARMACEUTICALS INC.-000000000000000543

PATIENT
  Sex: Female
  Weight: 60 kg

DRUGS (12)
  1. COPEGUS [Concomitant]
     Dosage: DOSAGE FORM: UNSPECIFIED
     Route: 065
     Dates: start: 20120228, end: 20120319
  2. LANTUS [Concomitant]
     Indication: DIABETES MELLITUS
     Dates: start: 20111210
  3. LEXOMIL [Concomitant]
     Indication: ANXIETY
     Dates: start: 20120324
  4. VALSARTAN [Concomitant]
     Indication: HYPERTENSION
     Dates: start: 20120229, end: 20120319
  5. LANTUS [Concomitant]
     Dates: start: 20120325, end: 20120328
  6. INCIVO [Suspect]
     Indication: HEPATITIS C
     Dosage: DOSAGE FORM: TABLET
     Route: 048
     Dates: start: 20120104, end: 20120319
  7. COPEGUS [Concomitant]
     Indication: HEPATITIS C
     Dosage: DOSAGE FORM: UNSPECIFIED, 400X2+200
     Route: 065
     Dates: start: 20120104, end: 20120226
  8. PEGASYS [Concomitant]
     Indication: HEPATITIS C
     Dosage: DOSAGE FORM: UNSPECIFIED
     Route: 065
     Dates: start: 20120104, end: 20120229
  9. METFORMIN HYDROCHLORIDE [Concomitant]
     Indication: DIABETES MELLITUS
     Dosage: 50MG/1000MG
     Dates: start: 20110101
  10. PEGASYS [Concomitant]
     Dosage: DOSAGE FORM: UNSPECIFIED
     Route: 065
     Dates: start: 20120301, end: 20120319
  11. LANTUS [Concomitant]
     Dates: start: 20120328
  12. AMARYL [Concomitant]

REACTIONS (3)
  - HYPERTHERMIA [None]
  - ANAEMIA [None]
  - ESCHERICHIA BACTERAEMIA [None]
